FAERS Safety Report 7571452-3 (Version None)
Quarter: 2011Q2

REPORT INFORMATION
  Report Type: 
  Country: None (occurrence: None)
  Receive Date: 20110624
  Receipt Date: 20110614
  Transmission Date: 20111010
  Serious: Yes (Hospitalization)
  Sender: FDA-Public Use
  Company Number: US-JNJFOC-20110608911

PATIENT
  Sex: Male
  Weight: 129.25 kg

DRUGS (7)
  1. IBUPROFEN [Suspect]
     Indication: PAIN
  2. TENORMIN [Concomitant]
  3. TOPAMAX [Suspect]
     Indication: HEADACHE
  4. TOPAMAX [Suspect]
     Indication: MIGRAINE
  5. PERCOCET [Concomitant]
  6. SERTRALINE HYDROCHLORIDE [Suspect]
     Indication: DEPRESSION
     Route: 048
     Dates: start: 20060101
  7. XANAX [Concomitant]

REACTIONS (2)
  - INCORRECT DOSE ADMINISTERED [None]
  - ARTHROPATHY [None]
